FAERS Safety Report 21178250 (Version 2)
Quarter: 2022Q4

REPORT INFORMATION
  Report Type: Report from Study
  Country: US (occurrence: US)
  Receive Date: 20220805
  Receipt Date: 20221025
  Transmission Date: 20230112
  Serious: Yes (Other)
  Sender: FDA-Public Use
  Company Number: US-BIOVITRUM-2022US09213

PATIENT
  Age: 73 Year
  Sex: Male

DRUGS (1)
  1. KINERET [Suspect]
     Active Substance: ANAKINRA
     Indication: Rheumatoid arthritis
     Dates: start: 20190403

REACTIONS (12)
  - Cellulitis [Unknown]
  - Pain in extremity [Unknown]
  - Ligament sprain [Unknown]
  - Fatigue [Unknown]
  - COVID-19 [Unknown]
  - Nodule [Unknown]
  - Ageusia [Unknown]
  - Anosmia [Unknown]
  - Memory impairment [Unknown]
  - Decreased appetite [Unknown]
  - Blood cholesterol increased [Unknown]
  - Product dose omission issue [Unknown]

NARRATIVE: CASE EVENT DATE: 20210101
